FAERS Safety Report 7441584-9 (Version None)
Quarter: 2011Q2

REPORT INFORMATION
  Report Type: 
  Country: None (occurrence: None)
  Receive Date: 20110428
  Receipt Date: 20110426
  Transmission Date: 20111010
  Serious: No
  Sender: FDA-Public Use
  Company Number: US-PFIZER INC-2011090506

PATIENT
  Sex: Male
  Weight: 106.12 kg

DRUGS (3)
  1. PRISTIQ [Suspect]
     Indication: DEPRESSION
     Dosage: UNK, DAILY
     Route: 048
  2. WELLBUTRIN [Concomitant]
     Indication: DEPRESSION
     Dosage: 200 MG, 2X/DAY
     Route: 048
  3. DEXIDRINE [Concomitant]
     Indication: ASTHENIA
     Dosage: 30 MG, DAILY
     Route: 048

REACTIONS (6)
  - MUSCLE TIGHTNESS [None]
  - MYALGIA [None]
  - TENSION HEADACHE [None]
  - MUSCLE STRAIN [None]
  - MUSCULOSKELETAL STIFFNESS [None]
  - MUSCLE SPASMS [None]
